FAERS Safety Report 6904887-X (Version None)
Quarter: 2010Q3

REPORT INFORMATION
  Report Type: 
  Country: None (occurrence: None)
  Receive Date: 20100804
  Receipt Date: 20090730
  Transmission Date: 20110219
  Serious: No
  Sender: FDA-Public Use
  Company Number: US-PFIZER INC-2009226335

PATIENT
  Sex: Female
  Weight: 72.6 kg

DRUGS (4)
  1. LYRICA [Suspect]
     Indication: NEURALGIA
     Dosage: 75 MG, 2X/DAY
     Route: 048
     Dates: start: 20090101, end: 20090609
  2. LYRICA [Suspect]
     Indication: FIBROMYALGIA
  3. LISINOPRIL [Concomitant]
  4. NORTRIPTYLINE [Concomitant]

REACTIONS (6)
  - FALL [None]
  - INJURY [None]
  - MOTOR DYSFUNCTION [None]
  - MUSCULOSKELETAL PAIN [None]
  - NECK PAIN [None]
  - PAIN [None]
